FAERS Safety Report 9625599 (Version 1)
Quarter: 2013Q4

REPORT INFORMATION
  Report Type: Spontaneous
  Country: HK (occurrence: HK)
  Receive Date: 20131016
  Receipt Date: 20131016
  Transmission Date: 20140711
  Serious: Yes (Other)
  Sender: FDA-Public Use
  Company Number: HK-009507513-1310HKG002225

PATIENT
  Age: 88 Year
  Sex: Male

DRUGS (1)
  1. PROSCAR [Suspect]
     Dosage: UNK
     Route: 048
     Dates: start: 2001

REACTIONS (3)
  - Blindness [Unknown]
  - Macular degeneration [Unknown]
  - Gynaecomastia [Unknown]
